FAERS Safety Report 7458084-2 (Version None)
Quarter: 2011Q2

REPORT INFORMATION
  Report Type: 
  Country: None (occurrence: None)
  Receive Date: 20110504
  Receipt Date: 20110428
  Transmission Date: 20111010
  Serious: Yes (Other)
  Sender: FDA-Public Use
  Company Number: US-PFIZER INC-2011092632

PATIENT
  Sex: Female

DRUGS (2)
  1. DETROL LA [Suspect]
  2. NEURONTIN [Suspect]

REACTIONS (1)
  - CYSTITIS [None]
